FAERS Safety Report 5156946-2 (Version None)
Quarter: 2006Q4

REPORT INFORMATION
  Report Type: 
  Country: None (occurrence: None)
  Receive Date: 20061124
  Receipt Date: 20060913
  Transmission Date: 20070319
  Serious: Yes (Death)
  Sender: FDA-Public Use
  Company Number: AU-ROCHE-462947

PATIENT
  Age: 68 Year
  Sex: Female

DRUGS (12)
  1. CAPECITABINE [Suspect]
     Dosage: GIVEN IN 2 DIVIDED DOSES ON DAYS 1-14 OF INITIAL 3 WEEK CYCLE. DOSE ROUTE AND FREQUENCY AS PER PROT+
     Route: 048
     Dates: start: 20060609
  2. CAPECITABINE [Suspect]
     Dosage: CYCLE 2
     Route: 048
     Dates: start: 20060705, end: 20060719
  3. CAPECITABINE [Suspect]
     Dosage: CYCLE 3
     Route: 048
     Dates: start: 20060809, end: 20060823
  4. CAPECITABINE [Suspect]
     Dosage: CYCLE 4
     Route: 048
     Dates: start: 20060831, end: 20060908
  5. BEVACIZUMAB [Suspect]
     Dosage: DOSE ROUTE AND FREQUENCY AS PER PROTOCOL
     Route: 042
     Dates: start: 20060609
  6. BEVACIZUMAB [Suspect]
     Dosage: ADMINISTERED ON DAY 1 OF CYCLE 2.
     Route: 042
     Dates: start: 20060705
  7. BEVACIZUMAB [Suspect]
     Dosage: ADMINISTERED ON DAY 1 OF CYCLE 3 (9 AUG 2006) AND CYCLE 4 (31 AUG 2006)
     Route: 042
     Dates: start: 20060809
  8. MITOMYCIN [Suspect]
     Dosage: ADMINISTERED ON DAY 1 OF A 6 WEEK CYCLE. DOSE ROUTE AND FREQUENCY AS PER PROTOCOL
     Route: 042
     Dates: start: 20060609
  9. MITOMYCIN [Suspect]
     Dosage: SECOND CYCLE OF MITOMYCIN
     Route: 042
     Dates: start: 20060809
  10. LEVOTHYROXINE SODIUM [Concomitant]
     Route: 048
     Dates: start: 20010314
  11. PANAMAX [Concomitant]
     Route: 048
     Dates: start: 20010314
  12. TEMAZEPAM [Concomitant]
     Route: 048
     Dates: start: 20060615

REACTIONS (3)
  - LOSS OF CONSCIOUSNESS [None]
  - PULMONARY EMBOLISM [None]
  - RESPIRATORY ARREST [None]
